FAERS Safety Report 24249467 (Version 4)
Quarter: 2025Q2

REPORT INFORMATION
  Report Type: Spontaneous
  Country: US (occurrence: US)
  Receive Date: 20240826
  Receipt Date: 20250529
  Transmission Date: 20250716
  Serious: No
  Sender: SANOFI AVENTIS
  Company Number: US-SA-SAC20240817000806

PATIENT
  Age: 53 Year
  Sex: Female

DRUGS (2)
  1. DUPIXENT [Suspect]
     Active Substance: DUPILUMAB
     Indication: Eczema
     Route: 058
     Dates: start: 20240109, end: 20240109
  2. DUPIXENT [Suspect]
     Active Substance: DUPILUMAB
     Indication: Dermatitis atopic
     Dosage: 300 MG, QOW
     Route: 058
     Dates: start: 202401

REACTIONS (4)
  - Scratch [Not Recovered/Not Resolved]
  - Rebound eczema [Recovering/Resolving]
  - Pruritus [Not Recovered/Not Resolved]
  - Foot operation [Recovering/Resolving]

NARRATIVE: CASE EVENT DATE: 20240101
